FAERS Safety Report 9317333 (Version 1)
Quarter: 2013Q2

REPORT INFORMATION
  Report Type: Spontaneous
  Country: US (occurrence: US)
  Receive Date: 20130530
  Receipt Date: 20130530
  Transmission Date: 20140414
  Serious: No
  Sender: FDA-Public Use
  Company Number: US-NOVEN-12US005164

PATIENT
  Age: 14 Year
  Sex: Female
  Weight: 62.59 kg

DRUGS (1)
  1. DAYTRANA [Suspect]
     Indication: ATTENTION DEFICIT/HYPERACTIVITY DISORDER
     Dosage: 10 MG, UNK
     Route: 062
     Dates: start: 20120409

REACTIONS (2)
  - Application site vesicles [Recovered/Resolved]
  - Drug administered at inappropriate site [Recovered/Resolved]
